FAERS Safety Report 25013530 (Version 2)
Quarter: 2025Q1

REPORT INFORMATION
  Report Type: Spontaneous
  Country: US (occurrence: US)
  Receive Date: 20250226
  Receipt Date: 20250306
  Transmission Date: 20250409
  Serious: Yes (Death, Other)
  Sender: AUROBINDO
  Company Number: US-AUROBINDO-AUR-APL-2025-009391

PATIENT
  Age: 35 Year
  Sex: Male

DRUGS (4)
  1. DEXTROAMPHETAMINE [Suspect]
     Active Substance: DEXTROAMPHETAMINE
     Indication: Suicide attempt
     Route: 065
  2. FENTANYL [Suspect]
     Active Substance: FENTANYL
     Indication: Suicide attempt
     Route: 065
  3. QUETIAPINE [Concomitant]
     Active Substance: QUETIAPINE
     Indication: Suicide attempt
     Route: 065
  4. BUPROPION [Concomitant]
     Active Substance: BUPROPION
     Indication: Suicide attempt
     Route: 065

REACTIONS (4)
  - Toxicity to various agents [Fatal]
  - Pulmonary oedema [Fatal]
  - Brain oedema [Fatal]
  - Arteriosclerosis [Fatal]
